FAERS Safety Report 10519989 (Version 1)
Quarter: 2014Q4

REPORT INFORMATION
  Report Type: Spontaneous
  Country: CA (occurrence: CA)
  Receive Date: 20141015
  Receipt Date: 20141015
  Transmission Date: 20150528
  Serious: Yes (Other)
  Sender: FDA-Public Use
  Company Number: CA-PFIZER INC-2014283013

PATIENT
  Age: 19 Year
  Sex: Female

DRUGS (4)
  1. VENLAFAXINE HCL [Suspect]
     Active Substance: VENLAFAXINE HYDROCHLORIDE
     Dosage: 187.5 MG, 1X/DAY
  2. ISOTRETINOIN [Suspect]
     Active Substance: ISOTRETINOIN
     Dosage: 70 MG, 1X/DAY
  3. SYMBICORT [Concomitant]
     Active Substance: BUDESONIDE\FORMOTEROL FUMARATE DIHYDRATE
     Dosage: UNK
  4. TERBINAFINE HYDROCHLORIDE. [Concomitant]
     Active Substance: TERBINAFINE HYDROCHLORIDE
     Dosage: UNK

REACTIONS (1)
  - Psychotic disorder [Recovered/Resolved]
